FAERS Safety Report 11915421 (Version 1)
Quarter: 2016Q1

REPORT INFORMATION
  Report Type: Spontaneous
  Country: US (occurrence: US)
  Receive Date: 20160114
  Receipt Date: 20160114
  Transmission Date: 20160526
  Serious: Yes (Hospitalization, Other)
  Sender: FDA-Public Use
  Company Number: US-AMGEN-USASP2016003217

PATIENT
  Age: 63 Year
  Sex: Male

DRUGS (1)
  1. ENBREL [Suspect]
     Active Substance: ETANERCEPT
     Indication: RHEUMATOID ARTHRITIS
     Dosage: 50 MG, QWK
     Route: 058
     Dates: start: 201512

REACTIONS (6)
  - Pain [Unknown]
  - Hypoaesthesia [Unknown]
  - Injection site pain [Unknown]
  - Paraesthesia [Unknown]
  - Respiratory tract congestion [Unknown]
  - Secretion discharge [Unknown]

NARRATIVE: CASE EVENT DATE: 201512
